FAERS Safety Report 14061391 (Version 1)
Quarter: 2017Q4

REPORT INFORMATION
  Report Type: Spontaneous
  Country: US (occurrence: US)
  Receive Date: 20171009
  Receipt Date: 20171009
  Transmission Date: 20180321
  Serious: Yes (Other)
  Sender: FDA-Public Use
  Company Number: US-BRISTOL-MYERS SQUIBB COMPANY-BMS-2017-089297

PATIENT
  Sex: Female
  Weight: 55.79 kg

DRUGS (1)
  1. BARACLUDE [Suspect]
     Active Substance: ENTECAVIR
     Indication: HEPATITIS B
     Dosage: 0.5 MG, QD
     Route: 048
     Dates: start: 201702

REACTIONS (6)
  - Fatigue [Unknown]
  - Pyrexia [Unknown]
  - Nasopharyngitis [Unknown]
  - Abdominal pain upper [Unknown]
  - Drug ineffective [Unknown]
  - Abdominal discomfort [Unknown]
